FAERS Safety Report 9199790 (Version 2)
Quarter: 2013Q2

REPORT INFORMATION
  Report Type: Spontaneous
  Country: US (occurrence: US)
  Receive Date: 20130329
  Receipt Date: 20130517
  Transmission Date: 20140414
  Serious: Yes (Hospitalization)
  Sender: FDA-Public Use
  Company Number: US-JNJFOC-20130314156

PATIENT
  Age: 64 Year
  Sex: Female
  Weight: 104.33 kg

DRUGS (7)
  1. SIMPONI [Suspect]
     Indication: RHEUMATOID ARTHRITIS
     Route: 058
     Dates: start: 2011
  2. METFORMIN [Concomitant]
     Indication: DIABETES PROPHYLAXIS
     Route: 065
  3. THYROID [Concomitant]
     Indication: THYROID DISORDER
     Route: 065
  4. ARAVA [Concomitant]
     Indication: ARTHRITIS
     Route: 065
  5. COREG [Concomitant]
     Indication: BLOOD PRESSURE
     Route: 065
  6. COREG [Concomitant]
     Indication: HEART RATE INCREASED
     Route: 065
  7. ALLEGRA [Concomitant]
     Indication: SEASONAL ALLERGY
     Route: 065

REACTIONS (5)
  - Vasculitis [Not Recovered/Not Resolved]
  - Cerebrovascular accident [Unknown]
  - Eosinophilia [Not Recovered/Not Resolved]
  - Incorrect storage of drug [Unknown]
  - Drug dose omission [Unknown]
